FAERS Safety Report 9288463 (Version 1)
Quarter: 2013Q2

REPORT INFORMATION
  Report Type: Spontaneous
  Country: US (occurrence: US)
  Receive Date: 20130514
  Receipt Date: 20130514
  Transmission Date: 20140414
  Serious: No
  Sender: FDA-Public Use
  Company Number: US-OPTIMER PHARMACEUTICALS, INC.-20110026

PATIENT
  Sex: 0

DRUGS (8)
  1. DIFICID [Suspect]
     Indication: CLOSTRIDIAL INFECTION
     Dosage: 200 MG, SINGLE DOSE
     Route: 048
     Dates: start: 20110918, end: 20110918
  2. FLAGYL [Concomitant]
     Dosage: UNK
     Route: 042
     Dates: start: 20110914, end: 20110918
  3. VANCOMYCIN [Concomitant]
     Dosage: UNK
     Dates: start: 20110915, end: 20110918
  4. VANCOMYCIN [Concomitant]
     Dosage: 125 MG, QID
     Route: 048
     Dates: start: 20110920
  5. PLAVIX [Concomitant]
     Dosage: 75 MG, UNK
  6. LISINOPRIL [Concomitant]
     Dosage: UNK
  7. LOPRESSOR [Concomitant]
     Dosage: 12.5 MG BID
  8. ASPIRIN [Concomitant]
     Dosage: 81 MG, QD

REACTIONS (6)
  - Drug hypersensitivity [Recovered/Resolved]
  - Lip swelling [Recovered/Resolved]
  - Eye swelling [Recovered/Resolved]
  - Rash [Recovered/Resolved]
  - Pruritus [Recovered/Resolved]
  - Diarrhoea [Not Recovered/Not Resolved]
